FAERS Safety Report 13015627 (Version 5)
Quarter: 2018Q2

REPORT INFORMATION
  Report Type: Spontaneous
  Country: IL (occurrence: IL)
  Receive Date: 20161212
  Receipt Date: 20180424
  Transmission Date: 20180711
  Serious: Yes (Hospitalization, Other)
  Sender: FDA-Public Use
  Company Number: IL-ROCHE-1864871

PATIENT
  Age: 36 Year
  Sex: Female
  Weight: 80 kg

DRUGS (4)
  1. XOLAIR [Suspect]
     Active Substance: OMALIZUMAB
     Indication: URTICARIA CHRONIC
     Route: 058
     Dates: start: 201506
  2. XOLAIR [Suspect]
     Active Substance: OMALIZUMAB
     Route: 058
     Dates: start: 20161109
  3. CEPHAZOLIN [Suspect]
     Active Substance: CEFAZOLIN
     Indication: SKIN INFECTION
     Route: 065
     Dates: start: 20161130
  4. OPTALGIN [Suspect]
     Active Substance: METAMIZOLE
     Indication: PRODUCT USED FOR UNKNOWN INDICATION
     Dosage: UNK
     Route: 065
     Dates: start: 20161130

REACTIONS (3)
  - Maternal exposure during pregnancy [Unknown]
  - Anaphylactic reaction [Unknown]
  - Drug hypersensitivity [Recovered/Resolved]

NARRATIVE: CASE EVENT DATE: 20161130
